FAERS Safety Report 6049128-3 (Version None)
Quarter: 2009Q1

REPORT INFORMATION
  Report Type: 
  Country: None (occurrence: None)
  Receive Date: 20090123
  Receipt Date: 20090115
  Transmission Date: 20090719
  Serious: Yes (Hospitalization)
  Sender: FDA-Public Use
  Company Number: FR-ABBOTT-09P-056-0499236-00

PATIENT
  Sex: Female

DRUGS (3)
  1. ZECLAR TABLETS [Suspect]
     Indication: LUNG DISORDER
     Route: 048
     Dates: start: 20080308, end: 20080310
  2. WARFARIN [Suspect]
     Indication: ANTICOAGULANT THERAPY
     Route: 048
     Dates: end: 20080310
  3. AMOXICILLIN AND CLAVULANATE POTASSIUM [Suspect]
     Indication: LUNG DISORDER
     Route: 048
     Dates: start: 20080304, end: 20080307

REACTIONS (3)
  - HAEMATURIA [None]
  - INTERNATIONAL NORMALISED RATIO INCREASED [None]
  - PROTHROMBIN LEVEL DECREASED [None]
